FAERS Safety Report 7392267-5 (Version None)
Quarter: 2011Q2

REPORT INFORMATION
  Report Type: 
  Country: None (occurrence: None)
  Receive Date: 20110404
  Receipt Date: 20110323
  Transmission Date: 20111010
  Serious: Yes (Hospitalization)
  Sender: FDA-Public Use
  Company Number: JP-ELI_LILLY_AND_COMPANY-JP201103006786

PATIENT
  Age: 48 Year
  Sex: Male
  Weight: 62 kg

DRUGS (2)
  1. GEMZAR [Suspect]
     Indication: PANCREATIC CARCINOMA STAGE I
     Route: 042
  2. GIMERACIL W/OTERACIL POTASSIUM/TEGAFUR [Concomitant]
     Indication: PANCREATIC CARCINOMA STAGE I
     Route: 048

REACTIONS (6)
  - CARDIAC FAILURE CONGESTIVE [None]
  - MITRAL VALVE INCOMPETENCE [None]
  - SEPTIC SHOCK [None]
  - DISSEMINATED INTRAVASCULAR COAGULATION [None]
  - RENAL IMPAIRMENT [None]
  - ENDOCARDITIS [None]
